FAERS Safety Report 4428574-5 (Version None)
Quarter: 2004Q3

REPORT INFORMATION
  Report Type: 
  Country: None (occurrence: None)
  Receive Date: 20040813
  Receipt Date: 20040728
  Transmission Date: 20050211
  Serious: Yes (Hospitalization)
  Sender: FDA-Public Use
  Company Number: 2004EU001476

PATIENT
  Age: 38 Year
  Sex: Female

DRUGS (4)
  1. PROGRAF [Suspect]
     Indication: RENAL TRANSPLANT
     Dosage: D
     Dates: start: 20011201, end: 20020101
  2. PREDNISOLONE [Concomitant]
  3. AZATHIOTRINE [Concomitant]
  4. DILTIAZEM [Concomitant]

REACTIONS (1)
  - DIABETIC KETOACIDOSIS [None]
